FAERS Safety Report 7921245-X (Version None)
Quarter: 2011Q4

REPORT INFORMATION
  Report Type: 
  Country: None (occurrence: None)
  Receive Date: 20111117
  Receipt Date: 20111115
  Transmission Date: 20120403
  Serious: No
  Sender: FDA-Public Use
  Company Number: US-PFIZER INC-2011280197

PATIENT
  Sex: Female
  Weight: 71.66 kg

DRUGS (5)
  1. MAGNESIUM [Concomitant]
     Dosage: UNK
  2. ARICEPT [Concomitant]
     Dosage: UNK
  3. PRISTIQ [Suspect]
     Indication: DIARRHOEA
     Dosage: 50 MG, 1X/DAY
     Route: 048
  4. METOPROLOL [Concomitant]
     Dosage: UNK
  5. PRADAXA [Concomitant]
     Dosage: UNK, 1X/DAY

REACTIONS (3)
  - MALABSORPTION [None]
  - MEDICATION RESIDUE [None]
  - DIARRHOEA [None]
